FAERS Safety Report 7910547-9 (Version None)
Quarter: 2011Q4

REPORT INFORMATION
  Report Type: 
  Country: None (occurrence: None)
  Receive Date: 20111111
  Receipt Date: 20111104
  Transmission Date: 20120403
  Serious: Yes (Hospitalization)
  Sender: FDA-Public Use
  Company Number: PHHY2011FR098155

PATIENT
  Sex: Female

DRUGS (1)
  1. FEMARA [Suspect]
     Route: 048

REACTIONS (1)
  - MYCOBACTERIAL INFECTION [None]
